FAERS Safety Report 4488205-5 (Version None)
Quarter: 2004Q4

REPORT INFORMATION
  Report Type: 
  Country: None (occurrence: None)
  Receive Date: 20041028
  Receipt Date: 20041019
  Transmission Date: 20050328
  Serious: Yes (Hospitalization)
  Sender: FDA-Public Use
  Company Number: GB-BRISTOL-MYERS SQUIBB COMPANY-12736211

PATIENT
  Sex: Female

DRUGS (8)
  1. STAVUDINE [Suspect]
     Indication: HIV INFECTION
     Dates: start: 20040630, end: 20040823
  2. VIRAMUNE [Suspect]
     Indication: HIV INFECTION
     Route: 048
     Dates: start: 20040630, end: 20040823
  3. LAMIVUDINE [Suspect]
     Indication: HIV INFECTION
     Dates: start: 20040630, end: 20040823
  4. BACTRIM [Concomitant]
     Indication: INFECTION PROPHYLAXIS
     Dosage: DOSAGE FORM: TABLET
     Route: 048
  5. LEVOTHYROXINE SODIUM [Concomitant]
  6. VITAMIN B-12 [Concomitant]
  7. VITAMIN C [Concomitant]
  8. FOLIC ACID [Concomitant]
     Dosage: ONCE DAILY

REACTIONS (3)
  - HEPATIC FAILURE [None]
  - TOXIC DILATATION OF COLON [None]
  - TOXIC EPIDERMAL NECROLYSIS [None]
